FAERS Safety Report 9366680 (Version 1)
Quarter: 2013Q2

REPORT INFORMATION
  Report Type: Spontaneous
  Country: US (occurrence: US)
  Receive Date: 20130625
  Receipt Date: 20130625
  Transmission Date: 20140414
  Serious: Yes (Hospitalization)
  Sender: FDA-Public Use
  Company Number: US-ELI_LILLY_AND_COMPANY-US201306005638

PATIENT
  Sex: Male

DRUGS (2)
  1. ZYPREXA [Suspect]
     Indication: SCHIZOPHRENIA
     Dosage: 1 DF, QD
     Dates: start: 1995
  2. MARIJUANA [Concomitant]
     Dosage: UNK

REACTIONS (9)
  - Drug dependence [Unknown]
  - Orthopnoea [Unknown]
  - Throat tightness [Unknown]
  - Hypoaesthesia [Unknown]
  - Malaise [Unknown]
  - Abdominal discomfort [Unknown]
  - Fatigue [Unknown]
  - Diabetes mellitus [Unknown]
  - Dizziness [Unknown]
